FAERS Safety Report 8218394-8 (Version None)
Quarter: 2012Q1

REPORT INFORMATION
  Report Type: 
  Country: None (occurrence: None)
  Receive Date: 20120319
  Receipt Date: 20120308
  Transmission Date: 20120608
  Serious: Yes (Hospitalization)
  Sender: FDA-Public Use
  Company Number: FR-GLAXOSMITHKLINE-B0786870A

PATIENT
  Sex: Male

DRUGS (11)
  1. CLAVENTIN [Suspect]
     Indication: SEPSIS
     Route: 042
     Dates: start: 20111014, end: 20111024
  2. LEVOFLOXACIN [Suspect]
     Indication: SEPSIS
     Dates: start: 20111102, end: 20111111
  3. AMITRIPTYLINE HCL [Suspect]
     Indication: DEPRESSION
     Dates: start: 20111105, end: 20111114
  4. CHLOROQUINE PHOSPHATE [Concomitant]
     Route: 065
  5. VANCOMYCIN [Suspect]
     Indication: SEPSIS
     Dosage: 2G PER DAY
     Route: 042
     Dates: start: 20111014, end: 20111107
  6. ORBENIN CAP [Suspect]
     Indication: SEPSIS
     Route: 048
     Dates: start: 20111107, end: 20111114
  7. SUBUTEX [Concomitant]
     Route: 065
  8. AMOXICILLIN AND CLAVULANATE POTASSIUM [Concomitant]
     Indication: SEPSIS
     Dates: start: 20111013, end: 20111014
  9. GENTAMICIN [Suspect]
     Indication: SEPSIS
     Dosage: 150MG PER DAY
     Route: 042
     Dates: start: 20111014, end: 20111028
  10. OFLOXACIN [Concomitant]
     Indication: SEPSIS
     Dates: start: 20111013, end: 20111014
  11. MORPHINE [Concomitant]
     Dosage: 1MGH UNKNOWN
     Route: 042

REACTIONS (3)
  - PYREXIA [None]
  - TOXIC SKIN ERUPTION [None]
  - EOSINOPHILIA [None]
